FAERS Safety Report 4729339-7 (Version None)
Quarter: 2005Q3

REPORT INFORMATION
  Report Type: 
  Country: None (occurrence: None)
  Receive Date: 20050729
  Receipt Date: 20050718
  Transmission Date: 20060218
  Serious: Yes (Other)
  Sender: FDA-Public Use
  Company Number: PHBS2005BE10494

PATIENT
  Age: 72 Year
  Sex: Female

DRUGS (8)
  1. AREDIA [Suspect]
     Indication: METASTASES TO BONE
     Route: 042
     Dates: start: 20021120, end: 20021201
  2. ZOMETA [Suspect]
     Indication: METASTASES TO BONE
     Route: 042
     Dates: start: 20030101
  3. RADIATION THERAPY [Concomitant]
     Dosage: AT D12
     Route: 065
     Dates: start: 20030819
  4. TAXOL [Concomitant]
     Dosage: 3 CYCLES
     Route: 065
     Dates: start: 20021217, end: 20030419
  5. HERCEPTIN [Concomitant]
     Dosage: 3 CYCLES
     Route: 065
     Dates: start: 20020217, end: 20030419
  6. HERCEPTIN [Concomitant]
     Dates: start: 20030520, end: 20030722
  7. MEDROL [Concomitant]
     Route: 065
  8. CAELYX [Concomitant]
     Route: 065
     Dates: start: 20050125

REACTIONS (6)
  - ASEPTIC NECROSIS BONE [None]
  - CARDIAC FAILURE [None]
  - GINGIVAL DISORDER [None]
  - METASTASES TO LIVER [None]
  - OSTEONECROSIS [None]
  - THROMBOPHLEBITIS [None]
